FAERS Safety Report 11203993 (Version 2)
Quarter: 2015Q3

REPORT INFORMATION
  Report Type: Spontaneous
  Country: JP (occurrence: JP)
  Receive Date: 20150619
  Receipt Date: 20150729
  Transmission Date: 20151125
  Serious: No
  Sender: FDA-Public Use
  Company Number: PHJP2015JP002830

PATIENT
  Age: 77 Year
  Sex: Female

DRUGS (6)
  1. COMTAN [Suspect]
     Active Substance: ENTACAPONE
     Indication: PARKINSON^S DISEASE
     Dosage: 200 MG, UNK
     Route: 048
  2. MENESIT [Suspect]
     Active Substance: CARBIDOPA\LEVODOPA
     Indication: PARKINSON^S DISEASE
     Dosage: 600 MG, QD
     Route: 048
  3. STALEVO [Suspect]
     Active Substance: CARBIDOPA\ENTACAPONE\LEVODOPA
     Dosage: 2 DF (LEVODOPA 50 MG/CARBIDOPA 5 MG/ENTACAPONE 100 MG)
     Route: 048
     Dates: start: 20150303
  4. MENESIT [Suspect]
     Active Substance: CARBIDOPA\LEVODOPA
     Dosage: 300 MG, UNK
     Route: 048
  5. STALEVO [Suspect]
     Active Substance: CARBIDOPA\ENTACAPONE\LEVODOPA
     Indication: PARKINSON^S DISEASE
     Dosage: 2 DF (LEVODOPA 100 MG/CARBIDOPA 10 MG/ENTACAPONE 100 MG), UNK
     Route: 048
  6. MENESIT [Suspect]
     Active Substance: CARBIDOPA\LEVODOPA
     Dosage: 400 MG, UNK
     Route: 048

REACTIONS (2)
  - Chromaturia [Recovering/Resolving]
  - Cystitis [Recovering/Resolving]

NARRATIVE: CASE EVENT DATE: 20150305
